FAERS Safety Report 5685130-9 (Version None)
Quarter: 2008Q1

REPORT INFORMATION
  Report Type: 
  Country: None (occurrence: None)
  Receive Date: 20080328
  Receipt Date: 20080326
  Transmission Date: 20080703
  Serious: Yes (Death)
  Sender: FDA-Public Use
  Company Number: US-BOEHRINGER INGELHEIM GMBH, GERMANY-2008-BP-03647BP

PATIENT
  Sex: Male

DRUGS (3)
  1. ZANTAC [Suspect]
     Indication: GASTROOESOPHAGEAL REFLUX DISEASE
     Route: 048
  2. BENADRYL [Suspect]
     Route: 048
  3. UNISOM [Suspect]
     Indication: INSOMNIA
     Route: 048

REACTIONS (4)
  - DRUG LEVEL [None]
  - DRUG TOXICITY [None]
  - DYSPNOEA [None]
  - MEDICATION ERROR [None]
